FAERS Safety Report 24850538 (Version 1)
Quarter: 2025Q1

REPORT INFORMATION
  Report Type: Spontaneous
  Country: US (occurrence: US)
  Receive Date: 20250116
  Receipt Date: 20250116
  Transmission Date: 20250409
  Serious: No
  Sender: SK LIFE SCIENCE
  Company Number: US-SK LIFE SCIENCE, INC-SKPVG-2024-000154

PATIENT

DRUGS (5)
  1. XCOPRI [Suspect]
     Active Substance: CENOBAMATE
     Indication: Seizure
     Route: 048
     Dates: start: 2023
  2. XCOPRI [Suspect]
     Active Substance: CENOBAMATE
     Dosage: 150 MILLIGRAM, ONCE PER NIGHT
     Route: 048
  3. XCOPRI [Suspect]
     Active Substance: CENOBAMATE
     Dosage: 200 MILLIGRAM, ONCE PER NIGHT
     Route: 048
  4. VIMPAT [Suspect]
     Active Substance: LACOSAMIDE
     Indication: Seizure
     Route: 065
  5. TOPAMAX [Suspect]
     Active Substance: TOPIRAMATE
     Indication: Seizure
     Route: 065

REACTIONS (9)
  - Joint stiffness [Unknown]
  - Speech disorder [Unknown]
  - Apathy [Unknown]
  - Dizziness [Not Recovered/Not Resolved]
  - Hypersomnia [Not Recovered/Not Resolved]
  - Memory impairment [Unknown]
  - Gait disturbance [Not Recovered/Not Resolved]
  - Coordination abnormal [Not Recovered/Not Resolved]
  - Disturbance in attention [Unknown]
